FAERS Safety Report 4835648-3 (Version None)
Quarter: 2005Q4

REPORT INFORMATION
  Report Type: 
  Country: None (occurrence: None)
  Receive Date: 20051121
  Receipt Date: 20051115
  Transmission Date: 20060501
  Serious: Yes (Hospitalization)
  Sender: FDA-Public Use
  Company Number: 2005155660

PATIENT
  Age: 65 Year
  Sex: Male

DRUGS (4)
  1. ATORVASTATIN CALCIUM [Suspect]
     Indication: HYPERLIPIDAEMIA
     Dosage: 10 MG (10 MG, 1 IN 1 D), ORAL
     Route: 048
     Dates: start: 20000101, end: 20051010
  2. ASPIRIN [Concomitant]
  3. LOGIMAX (FELODIPINE, METOPROLOL SUCCINATE) [Concomitant]
  4. VESDIL (RAMIPRIL) [Concomitant]

REACTIONS (2)
  - QUADRIPARESIS [None]
  - RHABDOMYOLYSIS [None]
